FAERS Safety Report 19445376 (Version 1)
Quarter: 2021Q2

REPORT INFORMATION
  Report Type: Report from Study
  Country: None (occurrence: BR)
  Receive Date: 20210622
  Receipt Date: 20210622
  Transmission Date: 20210717
  Serious: Yes (Hospitalization, Disabling)
  Sender: FDA-Public Use
  Company Number: BR-ABBVIE-21K-020-3956475-00

PATIENT
  Age: 38 Year
  Sex: Male
  Weight: 100 kg

DRUGS (4)
  1. SKYRIZI [Suspect]
     Active Substance: RISANKIZUMAB-RZAA
     Indication: PSORIASIS
     Route: 058
     Dates: start: 20210106, end: 2021
  2. COVID?19 VACCINE NOS. [Suspect]
     Active Substance: COVID-19 VACCINE NOS
     Indication: COVID-19 IMMUNISATION
     Route: 030
     Dates: start: 20210611
  3. SKYRIZI [Suspect]
     Active Substance: RISANKIZUMAB-RZAA
     Route: 058
     Dates: start: 2021
  4. SKYRIZI [Suspect]
     Active Substance: RISANKIZUMAB-RZAA
     Route: 058
     Dates: start: 202102, end: 2021

REACTIONS (10)
  - Hospitalisation [Unknown]
  - Hypertension [Unknown]
  - Lung infiltration [Unknown]
  - Influenza [Unknown]
  - Somnolence [Unknown]
  - Oxygen saturation decreased [Unknown]
  - Mobility decreased [Unknown]
  - Lung disorder [Unknown]
  - Inflammation [Unknown]
  - COVID-19 [Unknown]

NARRATIVE: CASE EVENT DATE: 2021
